FAERS Safety Report 20005340 (Version 2)
Quarter: 2022Q2

REPORT INFORMATION
  Report Type: Report from Study
  Country: CA (occurrence: CA)
  Receive Date: 20211028
  Receipt Date: 20220614
  Transmission Date: 20220720
  Serious: Yes (Other)
  Sender: FDA-Public Use
  Company Number: CA-ABBVIE-21K-028-4138152-00

PATIENT
  Sex: Male
  Weight: 77 kg

DRUGS (7)
  1. HUMIRA [Suspect]
     Active Substance: ADALIMUMAB
     Indication: Product used for unknown indication
     Route: 058
  2. INFLECTRA [Suspect]
     Active Substance: INFLIXIMAB-DYYB
     Indication: Colitis ulcerative
     Dosage: WEEK 0
     Route: 042
     Dates: start: 20210512, end: 202105
  3. INFLECTRA [Suspect]
     Active Substance: INFLIXIMAB-DYYB
     Dosage: WEEK 2
     Route: 042
     Dates: start: 20210526, end: 2021
  4. INFLECTRA [Suspect]
     Active Substance: INFLIXIMAB-DYYB
     Dosage: WEEK 6
     Route: 042
     Dates: start: 20210624, end: 2021
  5. INFLECTRA [Suspect]
     Active Substance: INFLIXIMAB-DYYB
     Route: 042
     Dates: start: 20210707
  6. ENTYVIO [Suspect]
     Active Substance: VEDOLIZUMAB
     Indication: Product used for unknown indication
     Route: 065
     Dates: start: 20210624
  7. NAPROXEN [Suspect]
     Active Substance: NAPROXEN
     Indication: Product used for unknown indication
     Route: 065
     Dates: start: 20210624

REACTIONS (11)
  - Faecal calprotectin increased [Recovered/Resolved]
  - Heart rate decreased [Recovered/Resolved]
  - Off label use [Unknown]
  - Intentional product misuse [Unknown]
  - Therapeutic product effect decreased [Unknown]
  - Therapeutic product effect decreased [Unknown]
  - Off label use [Recovered/Resolved]
  - Drug level below therapeutic [Unknown]
  - Therapeutic product effect decreased [Unknown]
  - Therapeutic product effect decreased [Recovered/Resolved]
  - Drug level below therapeutic [Recovered/Resolved]
